FAERS Safety Report 13026873 (Version 2)
Quarter: 2016Q4

REPORT INFORMATION
  Report Type: Report from Study
  Country: GB (occurrence: GB)
  Receive Date: 20161214
  Receipt Date: 20161215
  Transmission Date: 20170207
  Serious: Yes (Other)
  Sender: FDA-Public Use
  Company Number: ALCN2016GB008417

PATIENT
  Age: 19 Year
  Sex: Male

DRUGS (4)
  1. MAXITROL [Suspect]
     Active Substance: DEXAMETHASONE\NEOMYCIN SULFATE\POLYMYXIN B SULFATE
     Indication: NECROTISING RETINITIS
     Dosage: 1 DF, QID
     Route: 047
  2. VALACICLOVIR SANDOZ [Suspect]
     Active Substance: VALACYCLOVIR HYDROCHLORIDE
     Indication: NECROTISING RETINITIS
     Dosage: 2 G, TID
     Route: 048
  3. VALACICLOVIR SANDOZ [Suspect]
     Active Substance: VALACYCLOVIR HYDROCHLORIDE
     Dosage: 1 G, TID
  4. FOSCARNET [Suspect]
     Active Substance: FOSCARNET
     Indication: NECROTISING RETINITIS
     Dosage: 2.4 MG, ONCE2SDO
     Route: 031

REACTIONS (2)
  - Vitreous detachment [Unknown]
  - Retinal detachment [Unknown]
